FAERS Safety Report 5086770-0 (Version None)
Quarter: 2006Q3

REPORT INFORMATION
  Report Type: 
  Country: None (occurrence: None)
  Receive Date: 20060823
  Receipt Date: 20060809
  Transmission Date: 20061208
  Serious: No
  Sender: FDA-Public Use
  Company Number: 2006PK01743

PATIENT
  Age: 5879 Day
  Sex: Male
  Weight: 52.8 kg

DRUGS (35)
  1. SEROQUEL [Suspect]
     Route: 048
     Dates: start: 20030115, end: 20030115
  2. SEROQUEL [Suspect]
     Route: 048
     Dates: start: 20030116, end: 20030116
  3. SEROQUEL [Suspect]
     Route: 048
     Dates: start: 20030117, end: 20030117
  4. SEROQUEL [Suspect]
     Route: 048
     Dates: start: 20030118, end: 20030118
  5. SEROQUEL [Suspect]
     Route: 048
     Dates: start: 20030119, end: 20030128
  6. SEROQUEL [Suspect]
     Route: 048
     Dates: start: 20030129, end: 20030205
  7. SEROQUEL [Suspect]
     Route: 048
     Dates: start: 20030206, end: 20030218
  8. SEROQUEL [Suspect]
     Route: 048
     Dates: start: 20030219, end: 20030501
  9. SEROQUEL [Suspect]
     Route: 048
     Dates: start: 20030502, end: 20030517
  10. SEROQUEL [Suspect]
     Route: 048
     Dates: start: 20030518, end: 20030614
  11. SEROQUEL [Suspect]
     Route: 048
     Dates: start: 20030715, end: 20030719
  12. SEROQUEL [Suspect]
     Route: 048
     Dates: start: 20030720, end: 20031111
  13. SEROQUEL [Suspect]
     Route: 048
     Dates: start: 20031112, end: 20031124
  14. SEROQUEL [Suspect]
     Route: 048
     Dates: start: 20031125, end: 20040303
  15. SEROQUEL [Suspect]
     Route: 048
     Dates: start: 20040304, end: 20040306
  16. SEROQUEL [Suspect]
     Route: 048
     Dates: start: 20040307, end: 20040309
  17. SEROQUEL [Suspect]
     Route: 048
     Dates: start: 20040310, end: 20040322
  18. SEROQUEL [Suspect]
     Route: 048
     Dates: start: 20040803, end: 20040803
  19. SEROQUEL [Suspect]
     Route: 048
     Dates: start: 20040804, end: 20040805
  20. SEROQUEL [Suspect]
     Route: 048
     Dates: start: 20040806, end: 20040808
  21. SEROQUEL [Suspect]
     Route: 048
     Dates: start: 20040809, end: 20040809
  22. SEROQUEL [Suspect]
     Route: 048
     Dates: start: 20040810, end: 20040831
  23. SEROQUEL [Suspect]
     Route: 048
     Dates: start: 20040901, end: 20040901
  24. SEROQUEL [Suspect]
     Route: 048
     Dates: start: 20040902, end: 20040915
  25. SEROQUEL [Suspect]
     Route: 048
     Dates: start: 20040916, end: 20040929
  26. SEROQUEL [Suspect]
     Route: 048
     Dates: start: 20040930, end: 20041004
  27. SEROQUEL [Suspect]
     Route: 048
     Dates: start: 20041005, end: 20041017
  28. SEROQUEL [Suspect]
     Route: 048
     Dates: start: 20041018, end: 20050220
  29. SEROQUEL [Suspect]
     Route: 048
     Dates: start: 20050221, end: 20050227
  30. SEROQUEL [Suspect]
     Route: 048
     Dates: start: 20050228, end: 20050503
  31. SEROQUEL [Suspect]
     Route: 048
     Dates: start: 20050504
  32. TAVOR [Concomitant]
  33. CIPRAMIL [Concomitant]
  34. STANGYL [Concomitant]
  35. TRUXAL [Concomitant]

REACTIONS (14)
  - ASTHENIA [None]
  - DYSPEPSIA [None]
  - EPIDIDYMITIS [None]
  - ERECTILE DYSFUNCTION [None]
  - FATIGUE [None]
  - LEUKOPENIA [None]
  - PAIN IN EXTREMITY [None]
  - RED BLOOD CELL COUNT DECREASED [None]
  - TACHYCARDIA [None]
  - TRANSAMINASES INCREASED [None]
  - URINARY RETENTION [None]
  - VERTIGO [None]
  - WEIGHT DECREASED [None]
  - WEIGHT INCREASED [None]
